FAERS Safety Report 16185022 (Version 2)
Quarter: 2019Q2

REPORT INFORMATION
  Report Type: Spontaneous
  Country: PL (occurrence: PL)
  Receive Date: 20190411
  Receipt Date: 20190530
  Transmission Date: 20190711
  Serious: Yes (Life-Threatening, Hospitalization, Other)
  Sender: FDA-Public Use
  Company Number: PL-INCYTE CORPORATION-2019IN003597

PATIENT

DRUGS (33)
  1. PROPOFOL NORAMEDA [Concomitant]
     Active Substance: PROPOFOL
     Indication: PRODUCT USED FOR UNKNOWN INDICATION
     Route: 065
  2. JAKAVI [Suspect]
     Active Substance: RUXOLITINIB
     Indication: THROMBOCYTOSIS
     Dosage: 15 MG, BID
     Route: 065
     Dates: start: 20190222
  3. HYDROXYZINE                        /00058402/ [Concomitant]
     Active Substance: HYDROXYZINE HYDROCHLORIDE
     Indication: PRODUCT USED FOR UNKNOWN INDICATION
     Route: 065
  4. HELICID [Concomitant]
     Active Substance: OMEPRAZOLE
     Indication: PRODUCT USED FOR UNKNOWN INDICATION
     Route: 065
  5. PARACETAMOL KABI [Concomitant]
     Active Substance: ACETAMINOPHEN
     Indication: PRODUCT USED FOR UNKNOWN INDICATION
     Route: 065
  6. GLUCOSE [Concomitant]
     Active Substance: DEXTROSE
     Indication: PRODUCT USED FOR UNKNOWN INDICATION
     Route: 065
  7. FRAXIPARINE [Concomitant]
     Active Substance: NADROPARIN CALCIUM
     Indication: PRODUCT USED FOR UNKNOWN INDICATION
     Route: 065
  8. OPTILYTE [Concomitant]
     Active Substance: CALCIUM CHLORIDE\MAGNESIUM CHLORIDE\POTASSIUM CHLORIDE\SODIUM ACETATE\SODIUM CHLORIDE\SODIUM CITRATE
     Indication: PRODUCT USED FOR UNKNOWN INDICATION
     Route: 065
  9. MILURIT [Concomitant]
     Active Substance: ALLOPURINOL
     Indication: PRODUCT USED FOR UNKNOWN INDICATION
     Dosage: UNK
     Route: 065
  10. PROMAZINE [Concomitant]
     Active Substance: PROMAZINE
     Indication: PRODUCT USED FOR UNKNOWN INDICATION
     Dosage: UNK
     Route: 065
  11. NACL [Concomitant]
     Active Substance: SODIUM CHLORIDE
     Indication: PRODUCT USED FOR UNKNOWN INDICATION
     Route: 065
  12. DEXAVEN [Concomitant]
     Active Substance: DEXAMETHASONE
     Indication: PRODUCT USED FOR UNKNOWN INDICATION
     Route: 065
  13. PYRILGIN [Concomitant]
     Active Substance: METAMIZOLE SODIUM
     Indication: PRODUCT USED FOR UNKNOWN INDICATION
     Route: 065
  14. JAKAVI [Suspect]
     Active Substance: RUXOLITINIB
     Indication: ESSENTIAL THROMBOCYTHAEMIA
     Dosage: 15 MG, BID
     Route: 048
     Dates: start: 20190328
  15. BIOTAXIME [Concomitant]
     Indication: PRODUCT USED FOR UNKNOWN INDICATION
     Route: 065
  16. POTASSIUM CHLORIDE. [Concomitant]
     Active Substance: POTASSIUM CHLORIDE
     Indication: PRODUCT USED FOR UNKNOWN INDICATION
     Route: 065
  17. EDICIN [Concomitant]
     Active Substance: VANCOMYCIN HYDROCHLORIDE
     Indication: PRODUCT USED FOR UNKNOWN INDICATION
     Route: 065
  18. BISEPTOL [Concomitant]
     Active Substance: SULFAMETHOXAZOLE\TRIMETHOPRIM
     Indication: PRODUCT USED FOR UNKNOWN INDICATION
     Dosage: 960 MG, BID (FOR 14 DAYS
     Route: 065
  19. LEVONOR [Concomitant]
     Indication: PRODUCT USED FOR UNKNOWN INDICATION
     Route: 065
  20. BIOTRAKSON [Concomitant]
     Active Substance: CEFTRIAXONE SODIUM
     Indication: PRODUCT USED FOR UNKNOWN INDICATION
     Route: 065
  21. KALIPOZ [Concomitant]
     Active Substance: POTASSIUM CHLORIDE
     Indication: PRODUCT USED FOR UNKNOWN INDICATION
     Route: 065
  22. POLOCARD [Concomitant]
     Active Substance: ASPIRIN
     Indication: PRODUCT USED FOR UNKNOWN INDICATION
     Dosage: UNK
  23. LACIDOFIL [Concomitant]
     Active Substance: LACTOBACILLUS ACIDOPHILUS\LACTOBACILLUS RHAMNOSUS
     Indication: PRODUCT USED FOR UNKNOWN INDICATION
     Route: 065
  24. RINGER-LACTATE SOLUTION ^FRESENIUS^ [Concomitant]
     Indication: PRODUCT USED FOR UNKNOWN INDICATION
     Route: 065
  25. CAPTOPRIL. [Concomitant]
     Active Substance: CAPTOPRIL
     Indication: PRODUCT USED FOR UNKNOWN INDICATION
     Route: 065
  26. FRESENIUS EIWEISS [Concomitant]
     Indication: PRODUCT USED FOR UNKNOWN INDICATION
     Route: 065
  27. FUROSEMIDE. [Concomitant]
     Active Substance: FUROSEMIDE
     Indication: PRODUCT USED FOR UNKNOWN INDICATION
     Route: 065
  28. LOPERAMIDE [Concomitant]
     Active Substance: LOPERAMIDE
     Indication: PRODUCT USED FOR UNKNOWN INDICATION
     Route: 065
  29. RBC [Concomitant]
     Active Substance: HUMAN RED BLOOD CELL
     Indication: PRODUCT USED FOR UNKNOWN INDICATION
     Dosage: UNK
     Route: 065
  30. ACIX [Concomitant]
     Indication: PRODUCT USED FOR UNKNOWN INDICATION
     Route: 065
  31. VOLUVEN [Concomitant]
     Active Substance: HYDROXYETHYL STARCH 130/0.4
     Indication: PRODUCT USED FOR UNKNOWN INDICATION
     Route: 065
  32. MIDANIUM [Concomitant]
     Active Substance: MIDAZOLAM HYDROCHLORIDE
     Indication: PRODUCT USED FOR UNKNOWN INDICATION
     Route: 065
  33. MANNITOL 15% BAXTER [Concomitant]
     Active Substance: MANNITOL
     Indication: PRODUCT USED FOR UNKNOWN INDICATION
     Route: 065

REACTIONS (15)
  - CSF test abnormal [Unknown]
  - Altered state of consciousness [Unknown]
  - Pyrexia [Recovering/Resolving]
  - Photophobia [Unknown]
  - Meningitis [Recovered/Resolved]
  - Nuchal rigidity [Recovering/Resolving]
  - Respiratory rate increased [Unknown]
  - Headache [Unknown]
  - Normocytic anaemia [Unknown]
  - Encephalitis [Unknown]
  - Leukopenia [Unknown]
  - Myelofibrosis [Unknown]
  - Aphasia [Unknown]
  - Sepsis [Unknown]
  - Asthenia [Unknown]

NARRATIVE: CASE EVENT DATE: 20190308
